FAERS Safety Report 5730662-8 (Version None)
Quarter: 2008Q2

REPORT INFORMATION
  Report Type: 
  Country: None (occurrence: None)
  Receive Date: 20080507
  Receipt Date: 20080429
  Transmission Date: 20081010
  Serious: Yes (Other)
  Sender: FDA-Public Use
  Company Number: GB-ASTRAZENECA-2008GB00717

PATIENT
  Age: 25221 Day
  Sex: Female

DRUGS (8)
  1. NOLVADEX [Suspect]
     Indication: BREAST CANCER
     Route: 048
     Dates: start: 19970528, end: 20020628
  2. ADCAL D3 [Concomitant]
     Indication: OSTEOPENIA
     Route: 048
     Dates: start: 20051118
  3. ATENOLOL [Concomitant]
     Indication: HYPERTENSION
     Route: 048
  4. ATENOLOL [Concomitant]
     Indication: ANGINA PECTORIS
     Route: 048
  5. SIMVASTATIN [Concomitant]
     Indication: CARDIOVASCULAR EVENT PROPHYLAXIS
     Route: 048
  6. ZOLPIDEM [Concomitant]
     Indication: INSOMNIA
     Route: 048
  7. FUROSEMIDE [Concomitant]
     Indication: OEDEMA
     Dosage: 20-40 MG PRN
     Route: 048
  8. CLOPIDOGREL [Concomitant]
     Indication: ATHEROSCLEROSIS PROPHYLAXIS
     Route: 048

REACTIONS (1)
  - OSTEOPENIA [None]
